FAERS Safety Report 8936956 (Version 2)
Quarter: 2013Q3

REPORT INFORMATION
  Report Type: Spontaneous
  Country: US (occurrence: US)
  Receive Date: 20121130
  Receipt Date: 20130813
  Transmission Date: 20140515
  Serious: Yes (Other)
  Sender: FDA-Public Use
  Company Number: US-ASTRAZENECA-2012SE89644

PATIENT
  Age: 51 Year
  Sex: Female
  Weight: 83.5 kg

DRUGS (18)
  1. FASLODEX [Suspect]
     Indication: BREAST CANCER
     Dosage: TAKES ON DAY 1, DAY 15, DAY 29
     Route: 030
  2. FASLODEX [Suspect]
     Indication: METASTASES TO LUNG
     Dosage: TAKES ON DAY 1, DAY 15, DAY 29
     Route: 030
  3. FASLODEX [Suspect]
     Indication: BREAST CANCER
     Route: 030
     Dates: start: 201012
  4. FASLODEX [Suspect]
     Indication: METASTASES TO LUNG
     Route: 030
     Dates: start: 201012
  5. FASLODEX [Suspect]
     Indication: BREAST CANCER
     Route: 030
     Dates: start: 201212
  6. FASLODEX [Suspect]
     Indication: METASTASES TO LUNG
     Route: 030
     Dates: start: 201212
  7. TAMOXIFEN [Suspect]
     Indication: BREAST CANCER
     Route: 048
     Dates: start: 2006
  8. TAMOXIFEN [Suspect]
     Indication: BREAST CANCER
     Route: 048
     Dates: start: 2008
  9. OXYCONTIN [Concomitant]
     Indication: PAIN
     Dosage: AS REQUIRED
     Route: 048
  10. OXYCONTIN [Concomitant]
     Indication: PAIN
     Route: 048
  11. OXYCONTIN [Concomitant]
     Indication: PAIN
     Route: 048
  12. EFFEXOR [Concomitant]
     Indication: HOT FLUSH
  13. EXTAVIA [Concomitant]
     Indication: NEOPLASM MALIGNANT
     Dosage: MONTHLY
     Route: 050
  14. RETALIN [Concomitant]
     Indication: LETHARGY
     Route: 050
  15. XGEVA [Concomitant]
     Dosage: MONTH
     Dates: start: 2011
  16. OXYCODONE [Concomitant]
  17. CALCIUM [Concomitant]
  18. VITAMIN D [Concomitant]

REACTIONS (12)
  - Malignant neoplasm progression [Not Recovered/Not Resolved]
  - Metastases to lung [Unknown]
  - Metastases to bone [Unknown]
  - Malignant mesenteric neoplasm [Unknown]
  - Pollakiuria [Recovered/Resolved]
  - Urine odour abnormal [Recovered/Resolved]
  - Injection site swelling [Recovered/Resolved]
  - Injection site pruritus [Recovered/Resolved]
  - Metastatic pain [Unknown]
  - Early satiety [Unknown]
  - Weight decreased [Unknown]
  - Off label use [Unknown]
